FAERS Safety Report 9347016 (Version 1)
Quarter: 2013Q2

REPORT INFORMATION
  Report Type: Other
  Country: NL (occurrence: NL)
  Receive Date: 20130613
  Receipt Date: 20130613
  Transmission Date: 20140414
  Serious: Yes (Hospitalization, Disabling)
  Sender: FDA-Public Use
  Company Number: NL-WATSON-2013-10649

PATIENT
  Age: 57 Year
  Sex: Male

DRUGS (10)
  1. DIAZEPAM (UNKNOWN) [Suspect]
     Indication: ANXIETY
     Dosage: 4 MG, QID
     Route: 048
     Dates: start: 20130403
  2. MORPHINE SULFATE (UNKNOWN) [Suspect]
     Indication: PAIN
     Dosage: 30 MG, DAILY
     Route: 048
     Dates: start: 20130403
  3. FLUOXETINE HYDROCHLORIDE (UNKNOWN) [Suspect]
     Indication: DEPRESSED MOOD
     Dosage: 20 MG, DAILY
     Route: 048
     Dates: start: 19900201
  4. TRAMAL [Suspect]
     Indication: PAIN
     Dosage: 50 MG, QID
     Route: 048
     Dates: start: 20130403
  5. PARACETAMOL [Concomitant]
     Indication: PAIN
     Dosage: 1000 MG, QID
     Route: 065
     Dates: start: 20130403
  6. ACETYLSALICYLZUUR [Concomitant]
     Indication: PROPHYLAXIS
     Dosage: 80 MG, DAILY
     Route: 065
     Dates: start: 20120403
  7. METOPROLOL                         /00376902/ [Concomitant]
     Indication: ARRHYTHMIA
     Dosage: 50 MG, BID
     Route: 065
     Dates: start: 20130403
  8. TAMSULOSINE EG [Concomitant]
     Indication: PROSTATIC DISORDER
     Dosage: 0.4 MG, DAILY
     Route: 065
     Dates: start: 20130403
  9. BETAHISTINE [Concomitant]
     Indication: MENIERE^S DISEASE
     Dosage: 16 MG, QID
     Route: 065
     Dates: start: 20090507
  10. DICLOFENAC [Concomitant]
     Indication: PAIN
     Dosage: 100 MG, DAILY
     Route: 065
     Dates: start: 20130403

REACTIONS (4)
  - Sedation [Not Recovered/Not Resolved]
  - Withdrawal syndrome [Not Recovered/Not Resolved]
  - Hallucination [Not Recovered/Not Resolved]
  - Drug interaction [Not Recovered/Not Resolved]
